FAERS Safety Report 17574383 (Version 1)
Quarter: 2020Q1

REPORT INFORMATION
  Report Type: Spontaneous
  Country: US (occurrence: US)
  Receive Date: 20200324
  Receipt Date: 20200324
  Transmission Date: 20200409
  Serious: Yes (Other)
  Sender: FDA-Public Use
  Company Number: US-DRREDDYS-USA/USA/20/0120824

PATIENT
  Age: 31 Year
  Sex: Male
  Weight: 76.5 kg

DRUGS (1)
  1. BUPRENORPHINE AND NALOXONE SUBLINGUAL FILM 2 MG/0.5 MG AND 8MG/2MG [Suspect]
     Active Substance: BUPRENORPHINE\NALOXONE
     Indication: DRUG DEPENDENCE
     Dosage: DOSE 2 MG/0.5 MG AND 8MG/2MG
     Route: 057
     Dates: start: 20190125

REACTIONS (3)
  - Feeling abnormal [Unknown]
  - Drug ineffective [Unknown]
  - Product quality issue [Unknown]
